FAERS Safety Report 7995729-2 (Version None)
Quarter: 2011Q4

REPORT INFORMATION
  Report Type: 
  Country: None (occurrence: None)
  Receive Date: 20111216
  Receipt Date: 20111209
  Transmission Date: 20120403
  Serious: Yes (Hospitalization)
  Sender: FDA-Public Use
  Company Number: 2010SP024086

PATIENT
  Age: 29 Year
  Sex: Male
  Weight: 70.3075 kg

DRUGS (15)
  1. REMICADE [Suspect]
     Indication: HEPATITIS C
     Dosage: 393.18 MG, IV
     Route: 042
     Dates: start: 20091124, end: 20100111
  2. ATIVAN [Concomitant]
  3. ULTRAM [Concomitant]
  4. KEFLEX [Concomitant]
  5. PERCOCET [Concomitant]
  6. PEG-INTRON [Suspect]
     Indication: HEPATITIS C
     Dosage: 120 MCG, SC
     Route: 058
     Dates: start: 20091124, end: 20100419
  7. FLEXERIL [Concomitant]
  8. MOTRIN [Concomitant]
  9. AMLACTIN [Concomitant]
  10. REBETOL [Suspect]
     Indication: HEPATITIS C
     Dosage: 1000 MG, PO
     Route: 048
     Dates: start: 20091124, end: 20100423
  11. ACYCLOVIR [Concomitant]
  12. CELEXA [Concomitant]
  13. MODAFINIL [Concomitant]
  14. BUSPAR [Concomitant]
  15. KLONOPIN [Concomitant]

REACTIONS (1)
  - DRUG ABUSE [None]
